FAERS Safety Report 13789941 (Version 6)
Quarter: 2022Q2

REPORT INFORMATION
  Report Type: Spontaneous
  Country: US (occurrence: US)
  Receive Date: 20170725
  Receipt Date: 20220516
  Transmission Date: 20220721
  Serious: No
  Sender: FDA-Public Use
  Company Number: US-PFIZER INC-2017319979

PATIENT
  Age: 33 Year
  Sex: Male

DRUGS (1)
  1. ZIPRASIDONE HYDROCHLORIDE [Suspect]
     Active Substance: ZIPRASIDONE HYDROCHLORIDE
     Dosage: UNK

REACTIONS (3)
  - Urticaria [Unknown]
  - Rash [Unknown]
  - Hypersensitivity [Unknown]
